FAERS Safety Report 17871254 (Version 1)
Quarter: 2020Q2

REPORT INFORMATION
  Report Type: Spontaneous
  Country: US (occurrence: US)
  Receive Date: 20200605
  Receipt Date: 20200605
  Transmission Date: 20200714
  Serious: Yes (Hospitalization)
  Sender: FDA-Public Use
  Company Number: None

PATIENT
  Age: 58 Year
  Sex: Female

DRUGS (1)
  1. ENBREL [Suspect]
     Active Substance: ETANERCEPT
     Dosage: ?          OTHER DOSE:1 PEN;OTHER FREQUENCY:Q7D;?
     Route: 058
     Dates: start: 20200318

REACTIONS (4)
  - Malaise [None]
  - Sunburn [None]
  - Therapy interrupted [None]
  - Dehydration [None]

NARRATIVE: CASE EVENT DATE: 20200514
